APPROVED DRUG PRODUCT: BUSPIRONE HYDROCHLORIDE
Active Ingredient: BUSPIRONE HYDROCHLORIDE
Strength: 30MG
Dosage Form/Route: TABLET;ORAL
Application: A202087 | Product #004 | TE Code: AB
Applicant: AIPING PHARMACEUTICAL INC
Approved: Dec 16, 2015 | RLD: No | RS: No | Type: RX